FAERS Safety Report 9307009 (Version 5)
Quarter: 2016Q1

REPORT INFORMATION
  Report Type: Report from Study
  Country: GB (occurrence: GB)
  Receive Date: 20130523
  Receipt Date: 20160309
  Transmission Date: 20160526
  Serious: Yes (Hospitalization)
  Sender: FDA-Public Use
  Company Number: GB-MERCK-1211GBR008118

PATIENT
  Age: 61 Year
  Sex: Male

DRUGS (11)
  1. VORINOSTAT [Suspect]
     Active Substance: VORINOSTAT
     Dosage: 300 MG, QD, DAYS1-7 AND 15-21
     Route: 048
     Dates: start: 20121012, end: 20121129
  2. LENALIDOMIDE [Suspect]
     Active Substance: LENALIDOMIDE
     Dosage: 10 MG, QD; ON DAYS 1-21
     Route: 048
     Dates: start: 20121012, end: 20121117
  3. LENALIDOMIDE [Suspect]
     Active Substance: LENALIDOMIDE
     Dosage: 10 MG, QD; ON DAYS 1-21
     Route: 048
     Dates: start: 20121012, end: 20131117
  4. THALIDOMIDE [Suspect]
     Active Substance: THALIDOMIDE
     Indication: PLASMA CELL MYELOMA
     Dosage: 100 MG, CYCLICAL; DAYS 1-21
     Route: 048
     Dates: start: 20110902, end: 20120218
  5. VORINOSTAT [Suspect]
     Active Substance: VORINOSTAT
     Dosage: 200 MG, QD ON DAYS 1-7, 15-21
     Route: 048
     Dates: start: 20121012, end: 20130110
  6. BORTEZOMIB [Suspect]
     Active Substance: BORTEZOMIB
     Indication: PLASMA CELL MYELOMA
     Dosage: 2-3 MG, CYCLICAL. ON DAYS 1, 4, 8, 11
     Route: 042
     Dates: start: 20120207, end: 20120330
  7. LENALIDOMIDE [Suspect]
     Active Substance: LENALIDOMIDE
     Dosage: 10 MG, QD; ON DAYS 1-21
     Route: 048
     Dates: start: 20121012, end: 20121129
  8. VORINOSTAT [Suspect]
     Active Substance: VORINOSTAT
     Indication: PLASMA CELL MYELOMA
     Dosage: 300 MG, QD ON DAYS 1-7, 15-21
     Route: 048
     Dates: start: 20121012, end: 20121114
  9. LENALIDOMIDE [Suspect]
     Active Substance: LENALIDOMIDE
     Indication: PLASMA CELL MYELOMA
     Dosage: 10 MG, QD; ON DAYS 1-21
     Route: 048
     Dates: start: 20121012, end: 20121114
  10. DEXAMETHASONE. [Suspect]
     Active Substance: DEXAMETHASONE
     Indication: PLASMA CELL MYELOMA
     Dosage: 20 MG, CYCLICAL; ON DAYS 1-2, 4-, 8-9 AND 11-12
     Route: 048
     Dates: start: 20110902, end: 20120331
  11. CYCLOPHOSPHAMIDE. [Suspect]
     Active Substance: CYCLOPHOSPHAMIDE
     Indication: PLASMA CELL MYELOMA
     Dosage: 500 MG, QW
     Route: 048
     Dates: start: 20110902, end: 20120403

REACTIONS (6)
  - Gastrointestinal disorder [Recovered/Resolved]
  - Vomiting [Recovered/Resolved]
  - Neutropenic sepsis [Recovered/Resolved]
  - Lower respiratory tract infection [Recovered/Resolved]
  - Pyrexia [Recovered/Resolved]
  - Cough [Recovered/Resolved]

NARRATIVE: CASE EVENT DATE: 20121114
